FAERS Safety Report 10562312 (Version 2)
Quarter: 2015Q2

REPORT INFORMATION
  Report Type: Report from Study
  Country: DE (occurrence: DE)
  Receive Date: 20141104
  Receipt Date: 20150605
  Transmission Date: 20150821
  Serious: Yes (Life-Threatening)
  Sender: FDA-Public Use
  Company Number: DE-ROCHE-1483159

PATIENT
  Age: 42 Year
  Sex: Male
  Weight: 72 kg

DRUGS (4)
  1. TRETINOIN. [Suspect]
     Active Substance: TRETINOIN
     Indication: ACUTE MYELOID LEUKAEMIA
     Route: 065
     Dates: start: 20141013, end: 20141015
  2. IDARUBICIN HCL [Suspect]
     Active Substance: IDARUBICIN HYDROCHLORIDE
     Indication: ACUTE MYELOID LEUKAEMIA
     Dosage: LAST DOSE PRIOR TO EVENT 12/OCT/2014
     Route: 065
     Dates: start: 20141008
  3. CYTARABINE. [Suspect]
     Active Substance: CYTARABINE
     Indication: ACUTE MYELOID LEUKAEMIA
     Dosage: LAST DOSE PRIOR TO EVENT 14/OCT/2014
     Route: 065
     Dates: start: 20141008
  4. ETOPOSIDE. [Suspect]
     Active Substance: ETOPOSIDE
     Indication: ACUTE MYELOID LEUKAEMIA
     Dosage: LAST DOSE PRIOR TO EVENT 10/OCT/2014
     Route: 065
     Dates: start: 20141008

REACTIONS (1)
  - Subdural haemorrhage [Recovered/Resolved]

NARRATIVE: CASE EVENT DATE: 20141016
